FAERS Safety Report 10472161 (Version 1)
Quarter: 2014Q3

REPORT INFORMATION
  Report Type: Spontaneous
  Country: US (occurrence: None)
  Receive Date: 20140923
  Receipt Date: 20140923
  Transmission Date: 20150326
  Serious: Yes (Other)
  Sender: FDA-Public Use
  Company Number: None

PATIENT
  Age: 16 Year
  Sex: Female
  Weight: 56.7 kg

DRUGS (1)
  1. PROAIR HFA [Suspect]
     Active Substance: ALBUTEROL SULFATE
     Indication: ASTHMA EXERCISE INDUCED
     Dosage: 3-4 PUFFS EVERY 4 HOURS?EVERY 4 HOURS?INHALATION
     Route: 055
     Dates: start: 20140919, end: 20140920

REACTIONS (5)
  - Memory impairment [None]
  - Dysphemia [None]
  - Feeling abnormal [None]
  - Dizziness [None]
  - Abnormal behaviour [None]

NARRATIVE: CASE EVENT DATE: 20140919
